FAERS Safety Report 5402730-1 (Version None)
Quarter: 2007Q3

REPORT INFORMATION
  Report Type: 
  Country: None (occurrence: None)
  Receive Date: 20070801
  Receipt Date: 20070731
  Transmission Date: 20080115
  Serious: Yes (Hospitalization, Other)
  Sender: FDA-Public Use
  Company Number: AU-BRISTOL-MYERS SQUIBB COMPANY-13822994

PATIENT
  Age: 48 Year
  Sex: Male
  Weight: 91 kg

DRUGS (5)
  1. ETOPOPHOS [Suspect]
     Indication: CHEMOTHERAPY
     Route: 042
     Dates: start: 20070621, end: 20070621
  2. CARMUSTINE [Concomitant]
     Indication: CHEMOTHERAPY
     Route: 042
     Dates: start: 20070619, end: 20070619
  3. GRANISETRON [Concomitant]
     Indication: PREMEDICATION
     Route: 042
     Dates: start: 20070619, end: 20070625
  4. METOCLOPRAMIDE [Concomitant]
     Dates: start: 20070619, end: 20070622
  5. CYCLIZINE [Concomitant]
     Dates: start: 20070621, end: 20070629

REACTIONS (1)
  - SALIVARY GLAND ENLARGEMENT [None]
